FAERS Safety Report 19607241 (Version 21)
Quarter: 2022Q2

REPORT INFORMATION
  Report Type: Other
  Country: DE (occurrence: DE)
  Receive Date: 20210726
  Receipt Date: 20220502
  Transmission Date: 20220720
  Serious: Yes (Hospitalization, Other)
  Sender: FDA-Public Use
  Company Number: DE-ROCHE-2875564

PATIENT
  Age: 52 Year
  Sex: Female
  Weight: 62 kg

DRUGS (19)
  1. OCREVUS [Suspect]
     Active Substance: OCRELIZUMAB
     Indication: Relapsing-remitting multiple sclerosis
     Route: 042
     Dates: start: 20180523
  2. OCREVUS [Suspect]
     Active Substance: OCRELIZUMAB
     Indication: Secondary progressive multiple sclerosis
     Route: 042
     Dates: start: 20201028
  3. OCREVUS [Suspect]
     Active Substance: OCRELIZUMAB
     Route: 042
     Dates: start: 20210812
  4. CORTISONE [Suspect]
     Active Substance: CORTISONE
     Indication: Product used for unknown indication
     Dosage: ALTERNATIVE TO VOLON A
     Route: 065
     Dates: start: 20200810, end: 20200813
  5. COMIRNATY [Suspect]
     Active Substance: TOZINAMERAN
     Indication: COVID-19 immunisation
     Dosage: SINGLE DOSE
     Route: 065
     Dates: start: 20210415, end: 20210415
  6. COMIRNATY [Suspect]
     Active Substance: TOZINAMERAN
     Dosage: 2ND VACCINE
     Route: 065
     Dates: start: 20210526
  7. PANTOPRAZOLE [Suspect]
     Active Substance: PANTOPRAZOLE
     Indication: Product used for unknown indication
     Route: 065
  8. PANTOPRAZOLE [Suspect]
     Active Substance: PANTOPRAZOLE
     Route: 065
  9. DOMPERIDONE [Concomitant]
     Active Substance: DOMPERIDONE
  10. TRIAMCINOLONE ACETONIDE [Concomitant]
     Active Substance: TRIAMCINOLONE ACETONIDE
     Dates: start: 20200409
  11. TRIAMCINOLONE ACETONIDE [Concomitant]
     Active Substance: TRIAMCINOLONE ACETONIDE
     Dosage: INTO SPINAL FLUID
  12. ALBUTEROL [Concomitant]
     Active Substance: ALBUTEROL
  13. CHOLECALCIFEROL [Concomitant]
     Active Substance: CHOLECALCIFEROL
  14. CANNABIS SATIVA FLOWERING TOP [Concomitant]
     Active Substance: CANNABIS SATIVA FLOWERING TOP
     Dosage: SEVERAL TIMES PER DAY AND IN THE NIGHT?CANNABIS BLOSSOMS 3-5X DAILY AND AT NIGHT;
  15. OXYCODONE [Concomitant]
     Active Substance: OXYCODONE
     Dosage: 5 MG AS NEEDED (UP TO 4 TABLETS DAILY) AS REQUIRED
  16. IBUPROFEN [Concomitant]
     Active Substance: IBUPROFEN
  17. NOVALGIN (METAMIZOLE SODIUM) [Concomitant]
     Active Substance: METAMIZOLE SODIUM
  18. COTRIMOXAZOLE [Concomitant]
     Active Substance: SULFAMETHOXAZOLE\TRIMETHOPRIM
  19. VAGISAN (GERMANY) [Concomitant]

REACTIONS (32)
  - Chronic gastritis [Not Recovered/Not Resolved]
  - Osteoporosis [Unknown]
  - Migraine [Unknown]
  - SARS-CoV-2 antibody test negative [Not Recovered/Not Resolved]
  - Calcinosis [Recovered/Resolved]
  - Seborrhoeic keratosis [Unknown]
  - Wound [Recovered/Resolved]
  - Uterine enlargement [Recovered/Resolved]
  - Gamma-glutamyltransferase increased [Recovered/Resolved]
  - Urine odour abnormal [Recovering/Resolving]
  - Platelet count increased [Recovered/Resolved]
  - Vitamin D decreased [Recovered/Resolved]
  - Blood pressure increased [Recovered/Resolved]
  - Throat irritation [Recovered/Resolved]
  - Platelet count decreased [Recovered/Resolved]
  - Tooth fracture [Not Recovered/Not Resolved]
  - Pain [Recovered/Resolved]
  - Alopecia [Recovered/Resolved]
  - Cystitis [Not Recovered/Not Resolved]
  - Dry skin [Not Recovered/Not Resolved]
  - Folate deficiency [Recovered/Resolved]
  - Urinary tract infection [Recovered/Resolved]
  - Nasopharyngitis [Recovered/Resolved]
  - Intestinal atony [Unknown]
  - Oral herpes [Recovered/Resolved]
  - Urogenital fistula [Recovered/Resolved]
  - Weight increased [Not Recovered/Not Resolved]
  - Cataract [Not Recovered/Not Resolved]
  - Cushing^s syndrome [Not Recovered/Not Resolved]
  - Lymphocyte count decreased [Recovered/Resolved]
  - Multiple sclerosis relapse [Recovering/Resolving]
  - B-lymphocyte count abnormal [Unknown]

NARRATIVE: CASE EVENT DATE: 20180801
